FAERS Safety Report 12171635 (Version 1)
Quarter: 2016Q1

REPORT INFORMATION
  Report Type: Spontaneous
  Country: JP (occurrence: JP)
  Receive Date: 20160311
  Receipt Date: 20160311
  Transmission Date: 20160526
  Serious: Yes (Hospitalization)
  Sender: FDA-Public Use
  Company Number: JP-SA-2016SA046205

PATIENT
  Age: 76 Year
  Sex: Male

DRUGS (13)
  1. LUPRAC [Concomitant]
     Active Substance: TORSEMIDE
  2. ESOMEPRAZOLE MAGNESIUM. [Suspect]
     Active Substance: ESOMEPRAZOLE MAGNESIUM
     Route: 048
     Dates: start: 20151015, end: 20151103
  3. SAMSCA [Suspect]
     Active Substance: TOLVAPTAN
     Indication: CARDIAC FAILURE
     Route: 048
     Dates: start: 20150717, end: 20151110
  4. AMITIZA [Suspect]
     Active Substance: LUBIPROSTONE
     Route: 065
  5. WARFARIN POTASSIUM [Concomitant]
     Active Substance: WARFARIN POTASSIUM
  6. DAONIL [Concomitant]
     Active Substance: GLYBURIDE
  7. TAKECAB [Concomitant]
     Dates: end: 20151015
  8. AMLODIPINE BESILATE [Concomitant]
     Active Substance: AMLODIPINE BESYLATE
     Dosage: ORODISPERSIBLE TABLET
  9. MAGMITT [Concomitant]
     Active Substance: MAGNESIUM OXIDE
  10. VALSARTAN. [Concomitant]
     Active Substance: VALSARTAN
  11. NESINA [Concomitant]
     Active Substance: ALOGLIPTIN BENZOATE
  12. LANSOPRAZOLE. [Concomitant]
     Active Substance: LANSOPRAZOLE
     Dates: start: 20151103, end: 20151110
  13. PLAVIX [Suspect]
     Active Substance: CLOPIDOGREL BISULFATE
     Route: 048
     Dates: end: 20151110

REACTIONS (1)
  - Hepatic function abnormal [Recovered/Resolved]
